FAERS Safety Report 16226862 (Version 2)
Quarter: 2019Q2

REPORT INFORMATION
  Report Type: Report from Study
  Country: BR (occurrence: BR)
  Receive Date: 20190423
  Receipt Date: 20190427
  Transmission Date: 20190711
  Serious: Yes (Hospitalization, Other)
  Sender: FDA-Public Use
  Company Number: BR-UCBSA-2019015756

PATIENT
  Age: 62 Year
  Sex: Female
  Weight: 65 kg

DRUGS (2)
  1. LACOSAMIDE. [Suspect]
     Active Substance: LACOSAMIDE
     Indication: MENINGIOMA
     Dosage: 100 MG, 2X/DAY (BID)
     Route: 048
     Dates: start: 20190206
  2. LACOSAMIDE. [Suspect]
     Active Substance: LACOSAMIDE
     Indication: OFF LABEL USE

REACTIONS (2)
  - Off label use [Unknown]
  - Meningioma surgery [Recovered/Resolved]

NARRATIVE: CASE EVENT DATE: 20190206
